FAERS Safety Report 6531920-X (Version None)
Quarter: 2010Q1

REPORT INFORMATION
  Report Type: 
  Country: None (occurrence: None)
  Receive Date: 20100108
  Receipt Date: 20100104
  Transmission Date: 20100710
  Serious: Yes (Death, Hospitalization)
  Sender: FDA-Public Use
  Company Number: US-JNJFOC-20100101859

PATIENT
  Age: 61 Year
  Sex: Male

DRUGS (11)
  1. OXYBUTANIN [Suspect]
     Indication: DRUG USE FOR UNKNOWN INDICATION
     Route: 065
  2. CLOZAPINE [Suspect]
     Indication: SCHIZOPHRENIA
     Route: 065
  3. PROCYCLIDINE HYDROCHLORIDE 2MG TAB [Suspect]
     Indication: DRUG USE FOR UNKNOWN INDICATION
     Route: 065
  4. FIBRE, DIETARY [Concomitant]
     Indication: CONSTIPATION
     Route: 065
  5. LAMOTRIGINE [Concomitant]
     Route: 065
  6. FLURAZEPAM [Concomitant]
     Route: 065
  7. BISACODYL [Concomitant]
     Route: 065
  8. PSYLLIUM [Concomitant]
     Indication: CONSTIPATION
     Route: 065
  9. SODIUM DIOCTYL SULFOSUCCINATE [Concomitant]
     Indication: CONSTIPATION
     Route: 065
  10. GLYCERINE [Concomitant]
     Indication: CONSTIPATION
     Route: 065
  11. ENEMAS [Concomitant]
     Indication: FREQUENT BOWEL MOVEMENTS
     Route: 065

REACTIONS (4)
  - INTESTINAL OBSTRUCTION [None]
  - PNEUMONIA ASPIRATION [None]
  - POTENTIATING DRUG INTERACTION [None]
  - SEPSIS [None]
